FAERS Safety Report 21362591 (Version 2)
Quarter: 2024Q3

REPORT INFORMATION
  Report Type: Spontaneous
  Country: DK (occurrence: DK)
  Receive Date: 20220922
  Receipt Date: 20240715
  Transmission Date: 20241017
  Serious: Yes (Hospitalization)
  Sender: TEVA
  Company Number: None

PATIENT
  Age: 81 Year
  Sex: Male

DRUGS (3)
  1. GABAPENTIN [Suspect]
     Active Substance: GABAPENTIN
     Indication: Pain
     Dosage: STRENGTH: 300 MG
     Route: 048
     Dates: start: 20220812
  2. METOPROLOL SUCCINATE [Suspect]
     Active Substance: METOPROLOL SUCCINATE
     Indication: Hypertension
     Dosage: METOPROLOL SUCCINATE HEXAL
     Route: 065
     Dates: start: 20180529
  3. CEFUROXIME [Suspect]
     Active Substance: CEFUROXIME
     Indication: Hypertension
     Dosage: STRENGTH: 40 MG
     Route: 048
     Dates: start: 20200708

REACTIONS (2)
  - Dizziness [Unknown]
  - Fall [Recovered/Resolved]

NARRATIVE: CASE EVENT DATE: 20220821
